FAERS Safety Report 21488223 (Version 2)
Quarter: 2022Q4

REPORT INFORMATION
  Report Type: Spontaneous
  Country: AT (occurrence: AT)
  Receive Date: 20221020
  Receipt Date: 20221028
  Transmission Date: 20230112
  Serious: Yes (Death, Other)
  Sender: FDA-Public Use
  Company Number: AT-JNJFOC-20221034230

PATIENT
  Sex: Female

DRUGS (1)
  1. IMBRUVICA [Suspect]
     Active Substance: IBRUTINIB
     Indication: Chronic lymphocytic leukaemia
     Dosage: 6TH LINE FOR CLL
     Route: 048
     Dates: start: 20150630, end: 20161221

REACTIONS (2)
  - Chronic lymphocytic leukaemia [Fatal]
  - Atrial fibrillation [Unknown]
